FAERS Safety Report 5933340-5 (Version None)
Quarter: 2008Q4

REPORT INFORMATION
  Report Type: 
  Country: None (occurrence: None)
  Receive Date: 20081028
  Receipt Date: 20081016
  Transmission Date: 20090506
  Serious: Yes (Hospitalization, Other)
  Sender: FDA-Public Use
  Company Number: CA-PFIZER INC-2008088748

PATIENT
  Age: 29 Year
  Sex: Male

DRUGS (3)
  1. CHAMPIX [Suspect]
     Indication: SMOKING CESSATION THERAPY
     Route: 048
     Dates: start: 20080818, end: 20080922
  2. BIAXIN [Concomitant]
  3. ALCOHOL [Concomitant]

REACTIONS (4)
  - AMNESIA [None]
  - MANIA [None]
  - MIGRAINE [None]
  - PSYCHOTIC DISORDER [None]
